FAERS Safety Report 6438234-7 (Version None)
Quarter: 2009Q4

REPORT INFORMATION
  Report Type: 
  Country: None (occurrence: None)
  Receive Date: 20091109
  Receipt Date: 20091026
  Transmission Date: 20100525
  Serious: Yes (Hospitalization)
  Sender: FDA-Public Use
  Company Number: 2009110005

PATIENT
  Age: 80 Year
  Sex: Female
  Weight: 100 kg

DRUGS (6)
  1. TORSEMIDE [Suspect]
     Indication: HYPERTENSION
     Dosage: 2.5 MG (2.5 MG, 1 IN 1 D), ORAL
     Route: 048
  2. CARBAMAZEPINE [Suspect]
     Dosage: 200 MG (200 MG, 1  IN 1 D), ORAL
     Route: 048
  3. ENALAPRIL MALEATE AND HYDROCHLOROTHIAZIDE [Suspect]
     Indication: HYPERTENSION
     Dosage: 10 MG/25 MG (1 DOSAGE FORMS, 1 IN 1 D),ORAL
     Route: 048
     Dates: end: 20090721
  4. METOPROLOL (METOPROLOL) [Concomitant]
  5. NIFEDIPINE [Concomitant]
  6. OMEPRAZOLE [Concomitant]

REACTIONS (9)
  - BLOOD PRESSURE INCREASED [None]
  - CEREBRAL HAEMORRHAGE [None]
  - CHEST PAIN [None]
  - DRUG INTERACTION [None]
  - INAPPROPRIATE ANTIDIURETIC HORMONE SECRETION [None]
  - OSTEOCHONDROSIS [None]
  - SPINAL OSTEOARTHRITIS [None]
  - SPONDYLOLYSIS [None]
  - SYNCOPE [None]
